FAERS Safety Report 10153919 (Version 2)
Quarter: 2014Q2

REPORT INFORMATION
  Report Type: Spontaneous
  Country: US (occurrence: US)
  Receive Date: 20140506
  Receipt Date: 20140520
  Transmission Date: 20141212
  Serious: No
  Sender: FDA-Public Use
  Company Number: US-SHIRE-US201401476

PATIENT
  Age: 14 Year
  Sex: Male
  Weight: 99.77 kg

DRUGS (2)
  1. VYVANSE [Suspect]
     Indication: ATTENTION DEFICIT/HYPERACTIVITY DISORDER
     Dosage: 30 MG, OTHER(MONDAY THROUGH FRIDAY)
     Route: 048
     Dates: start: 2013, end: 2013
  2. VYVANSE [Suspect]
     Dosage: 40 MG, OTHER(MONDAY THROUGH FRIDAY)
     Route: 048
     Dates: start: 2013

REACTIONS (3)
  - Drug effect increased [Not Recovered/Not Resolved]
  - Condition aggravated [Not Recovered/Not Resolved]
  - Abdominal pain upper [Not Recovered/Not Resolved]
